FAERS Safety Report 4439554-8 (Version None)
Quarter: 2004Q3

REPORT INFORMATION
  Report Type: 
  Country: None (occurrence: None)
  Receive Date: 20040830
  Receipt Date: 20040820
  Transmission Date: 20050211
  Serious: Yes (Death, Hospitalization)
  Sender: FDA-Public Use
  Company Number: D01200403208

PATIENT
  Age: 60 Year
  Sex: Male

DRUGS (4)
  1. OXALIPLATIN SOLUTION 85MG/M2 [Suspect]
     Dosage: 85 MG/M2 Q2W
     Route: 042
     Dates: start: 20040730, end: 20040730
  2. FLUOROURACIL [Suspect]
     Dosage: 400 MG/M2 AS IV BOLUS THEN 600 MG/M2 AS 22 HOURS CONTINUOUS INFUSION D1-D2 Q2W
     Route: 042
     Dates: start: 20040730, end: 20040730
  3. SR57746 OR PLACEBO CAPSULE 1MG [Suspect]
     Dosage: 1 MG QD
     Route: 048
     Dates: start: 20040310
  4. LEUCOVORIN CALCIUM [Suspect]
     Dosage: 200 MG/M2 AS 2 HOURS INFUSION ON D1-D2 Q2W
     Route: 042
     Dates: start: 20040730, end: 20040730

REACTIONS (1)
  - SUDDEN DEATH [None]
